FAERS Safety Report 5590790-7 (Version None)
Quarter: 2008Q1

REPORT INFORMATION
  Report Type: 
  Country: None (occurrence: None)
  Receive Date: 20080110
  Receipt Date: 20071225
  Transmission Date: 20080703
  Serious: Yes (Other)
  Sender: FDA-Public Use
  Company Number: STI-2008-00051

PATIENT
  Age: 6 Year
  Sex: Male

DRUGS (1)
  1. 593A SARNA SENSITIVE LOTION (PRAMOXINE HYDROCHLORIDE) (PRAMOCAINE  HYD [Suspect]
     Indication: ECZEMA
     Dosage: TOPICAL
     Route: 061
     Dates: start: 20071223, end: 20071223

REACTIONS (2)
  - APPLICATION SITE ATROPHY [None]
  - APPLICATION SITE EXCORIATION [None]
